FAERS Safety Report 7821671-3 (Version None)
Quarter: 2011Q4

REPORT INFORMATION
  Report Type: 
  Country: None (occurrence: None)
  Receive Date: 20111018
  Receipt Date: 20111003
  Transmission Date: 20120403
  Serious: Yes (Death, Hospitalization, Other)
  Sender: FDA-Public Use
  Company Number: JP-TYCO HEALTHCARE/MALLINCKRODT-T201100686

PATIENT
  Sex: Male
  Weight: 54.3 kg

DRUGS (23)
  1. LOPERAMIDE HCL [Concomitant]
     Dosage: 2 MG, BID
     Dates: start: 20110115
  2. LENDORMIN [Concomitant]
     Dosage: 0.25 MG, QD
     Dates: start: 20010907
  3. TAGAMET                            /00397401/ [Concomitant]
     Dosage: 800 MG, BID
     Dates: start: 20090218
  4. RAMELTEON [Concomitant]
     Dosage: 0.3 ONCE  FOR 1 WEEK
     Dates: start: 20101124
  5. GEMZAR [Concomitant]
     Dosage: 1200 MG ONCE FOR 1 WEEK
     Dates: start: 20101124
  6. KYTRIL [Concomitant]
     Dosage: 3 MG/TWO WEEKS
     Dates: start: 20110719
  7. ZANTAC                             /00550802/ [Concomitant]
     Dosage: 50 MG/TWO WEEKS
     Dates: start: 20110719
  8. ETODOLAC [Concomitant]
     Dosage: 400 MG, BID
     Dates: start: 20090218
  9. LOCOID                             /00028605/ [Concomitant]
     Dosage: A PROPER DOSE AS NEEDED
     Dates: start: 20101109
  10. TS 1 [Concomitant]
     Dosage: 4 CUP BID, DAILY X 2 WEEKS, STOP X 1 WEEK; REPEAT
     Dates: start: 20101104
  11. LASIX [Concomitant]
     Dosage: 20 MG, QD
     Dates: start: 20110719
  12. METHADONE HCL [Suspect]
     Indication: CANCER PAIN
     Dosage: 15 MG, TID
     Route: 048
     Dates: start: 20101102, end: 20111001
  13. METHADONE HCL [Suspect]
     Dosage: 20 MG
     Dates: start: 20111001
  14. DECADRON [Concomitant]
     Dosage: 3.3 MG ONCE FOR 1 WEEK
     Dates: start: 20101124
  15. PROCHLORPERAZINE [Concomitant]
     Dosage: 10 MG, BID
     Dates: start: 20110622
  16. TAXOL [Concomitant]
     Dosage: 100 MG/TWO WEEKS
     Dates: start: 20110719
  17. ATARAX [Concomitant]
     Dosage: 25 MG/TWO WEEKS
     Dates: start: 20110719
  18. LEVOTHYROXINE SODIUM [Concomitant]
     Dosage: 100 ?G, QD
     Dates: start: 20080813, end: 20110608
  19. DECADRON [Concomitant]
     Dosage: 16.5 MG/TWO WEEKS
     Dates: start: 20110719
  20. TOPOTECAN [Concomitant]
     Dosage: 100 MG, ONCE EVERY 2 WEEKS
     Dates: start: 20110509
  21. LEVOTHYROXINE SODIUM [Concomitant]
     Dosage: 150 UG ONCE DAILY
     Dates: start: 20110609
  22. METHYCOBAL                         /00324901/ [Concomitant]
     Dosage: 1500 MG, TID
     Dates: start: 20110209
  23. CISPLATIN [Concomitant]
     Dosage: 80 MG, ONCE EVERY 2 WEEKS
     Dates: start: 20110509

REACTIONS (7)
  - PAIN [None]
  - MALIGNANT ASCITES [None]
  - PYREXIA [None]
  - LIVER DISORDER [None]
  - METASTASES TO LIVER [None]
  - DRUG THERAPY CHANGED [None]
  - PANCREATIC CARCINOMA [None]
